FAERS Safety Report 7876094-8 (Version None)
Quarter: 2011Q4

REPORT INFORMATION
  Report Type: 
  Country: None (occurrence: None)
  Receive Date: 20111031
  Receipt Date: 20111020
  Transmission Date: 20120403
  Serious: Yes (Other)
  Sender: FDA-Public Use
  Company Number: US-JNJFOC-20111010091

PATIENT
  Sex: Female
  Weight: 88 kg

DRUGS (8)
  1. ALPRAZOLAM [Concomitant]
     Indication: ANXIETY
     Route: 048
  2. REMICADE [Suspect]
     Indication: RHEUMATOID ARTHRITIS
     Route: 042
     Dates: start: 20080101
  3. BENAZEPRIL HYDROCHLORIDE [Concomitant]
     Indication: BLOOD PRESSURE
     Route: 048
     Dates: start: 20060101
  4. AMLODIPINE [Concomitant]
     Indication: BLOOD PRESSURE
     Route: 048
     Dates: start: 20060101
  5. METHOTREXATE [Concomitant]
     Indication: ARTHRITIS
     Route: 058
     Dates: start: 20060101
  6. PRISTIQ [Concomitant]
     Indication: DEPRESSION
     Route: 048
  7. CARAFATE [Concomitant]
     Indication: ULCER
     Dates: start: 20110901
  8. FOLIC ACID [Concomitant]
     Indication: ARTHRITIS
     Route: 048
     Dates: start: 20060101

REACTIONS (7)
  - NASOPHARYNGITIS [None]
  - FIBROMYALGIA [None]
  - SINUSITIS [None]
  - PYREXIA [None]
  - HORMONE LEVEL ABNORMAL [None]
  - FALL [None]
  - PELVIC FRACTURE [None]
